FAERS Safety Report 5361715-4 (Version None)
Quarter: 2007Q2

REPORT INFORMATION
  Report Type: 
  Country: None (occurrence: None)
  Receive Date: 20070619
  Receipt Date: 20070611
  Transmission Date: 20071010
  Serious: Yes (Life-Threatening, Hospitalization, Other)
  Sender: FDA-Public Use
  Company Number: GR-NOVOPROD-264496

PATIENT
  Sex: Female
  Weight: 1.55 kg

DRUGS (3)
  1. NOVOLOG MIX 70/30 [Suspect]
     Route: 064
  2. CLEXANE [Concomitant]
     Route: 064
  3. PROGESTERONE [Concomitant]
     Route: 064

REACTIONS (2)
  - NEONATAL RESPIRATORY DISTRESS SYNDROME [None]
  - PREMATURE BABY [None]
